FAERS Safety Report 15807108 (Version 9)
Quarter: 2019Q2

REPORT INFORMATION
  Report Type: Spontaneous
  Country: CA (occurrence: CA)
  Receive Date: 20190110
  Receipt Date: 20190627
  Transmission Date: 20190711
  Serious: Yes (Other)
  Sender: FDA-Public Use
  Company Number: CA-PFIZER INC-2017302216

PATIENT
  Age: 57 Year
  Sex: Female

DRUGS (19)
  1. INFLECTRA [Suspect]
     Active Substance: INFLIXIMAB-DYYB
     Indication: RHEUMATOID ARTHRITIS
     Dosage: 300 MG AT 0,2,6 WEEKS THEN EVERY 8 WEEKS
     Route: 042
     Dates: start: 20170907, end: 20170907
  2. INFLECTRA [Suspect]
     Active Substance: INFLIXIMAB-DYYB
     Dosage: 300 MG AT 0,2,6 WEEKS THEN EVERY 8 WEEKS
     Route: 042
     Dates: start: 20180917, end: 20180917
  3. INFLECTRA [Suspect]
     Active Substance: INFLIXIMAB-DYYB
     Dosage: 300 MG AT 0,2,6 WEEKS THEN EVERY 8 WEEKS
     Route: 042
     Dates: start: 20181112, end: 20181112
  4. INFLECTRA [Suspect]
     Active Substance: INFLIXIMAB-DYYB
     Dosage: 300 MG EVERY 8 WEEKS
     Route: 042
     Dates: start: 20190530
  5. CIPRALEX [Concomitant]
     Active Substance: ESCITALOPRAM OXALATE
     Dosage: 40 MG, 1X/DAY
     Route: 065
  6. LOSEC [Concomitant]
     Active Substance: OMEPRAZOLE
     Dosage: 20 MG, 1X/DAY
     Route: 065
  7. INFLECTRA [Suspect]
     Active Substance: INFLIXIMAB-DYYB
     Dosage: 300 MG, EVERY 8 WEEKS
     Route: 042
     Dates: start: 20190404
  8. LYRICA [Suspect]
     Active Substance: PREGABALIN
     Dosage: 150 MG, 1X/DAY
     Dates: start: 2009
  9. INFLECTRA [Suspect]
     Active Substance: INFLIXIMAB-DYYB
     Dosage: 300 MG AT 0,2,6 WEEKS THEN EVERY 8 WEEKS
     Route: 042
     Dates: start: 20171018, end: 20171018
  10. INFLECTRA [Suspect]
     Active Substance: INFLIXIMAB-DYYB
     Dosage: 300 MG AT 0,2,6 WEEKS THEN EVERY 8 WEEKS
     Route: 042
     Dates: start: 20180214, end: 20180214
  11. METHOTREXATE SODIUM. [Suspect]
     Active Substance: METHOTREXATE SODIUM
     Indication: RHEUMATOID ARTHRITIS
     Dosage: 2.5 MG, WEEKLY
     Route: 058
     Dates: start: 2012
  12. LEUCOVORIN /00566701/ [Concomitant]
     Active Substance: LEUCOVORIN
     Dosage: 5 MG, 2 DAYS FOLLOWING METHOTREXATE
     Dates: start: 2012
  13. INFLECTRA [Suspect]
     Active Substance: INFLIXIMAB-DYYB
     Dosage: 300 MG AT 0,2,6 WEEKS THEN EVERY 8 WEEKS
     Route: 042
     Dates: start: 20171220, end: 20171220
  14. INFLECTRA [Suspect]
     Active Substance: INFLIXIMAB-DYYB
     Dosage: 300 MG, EVERY 8 WEEKS
     Route: 042
     Dates: start: 20190430
  15. PERCOCET /00446701/ [Concomitant]
     Active Substance: ACETAMINOPHEN\OXYCODONE HYDROCHLORIDE\OXYCODONE TEREPHTHALATE
     Dosage: 525 MG, AS NEEDED (EVERY 6 HOURS AS NEEDED)
     Route: 065
  16. LEFLUNOMIDE. [Suspect]
     Active Substance: LEFLUNOMIDE
     Dosage: 10 MG, DAILY
  17. DICLOFENAC [Concomitant]
     Active Substance: DICLOFENAC
     Dosage: 100 MG, 1X/DAY
     Route: 065
     Dates: start: 2007
  18. INFLECTRA [Suspect]
     Active Substance: INFLIXIMAB-DYYB
     Dosage: 300 MG AT 0,2,6 WEEKS THEN EVERY 8 WEEKS
     Route: 042
     Dates: start: 20180731, end: 20180731
  19. INFLECTRA [Suspect]
     Active Substance: INFLIXIMAB-DYYB
     Dosage: 300 MG AT 0,2,6 WEEKS THEN EVERY 8 WEEKS
     Route: 042
     Dates: start: 20190117, end: 20190117

REACTIONS (19)
  - Therapeutic response shortened [Unknown]
  - Influenza [Recovered/Resolved]
  - Cystitis [Recovered/Resolved]
  - Peripheral swelling [Recovering/Resolving]
  - Nasopharyngitis [Recovered/Resolved]
  - Mobility decreased [Unknown]
  - Blood pressure fluctuation [Unknown]
  - Malaise [Unknown]
  - Off label use [Unknown]
  - Administration site extravasation [Unknown]
  - Pain [Not Recovered/Not Resolved]
  - Hypoaesthesia [Unknown]
  - Product use issue [Unknown]
  - Blood pressure fluctuation [Unknown]
  - Renal disorder [Unknown]
  - Stress [Unknown]
  - Pneumonia [Recovered/Resolved]
  - Lower respiratory tract infection [Recovered/Resolved]
  - Back pain [Not Recovered/Not Resolved]

NARRATIVE: CASE EVENT DATE: 20180214
